FAERS Safety Report 7861582-0 (Version None)
Quarter: 2011Q4

REPORT INFORMATION
  Report Type: 
  Country: None (occurrence: None)
  Receive Date: 20111027
  Receipt Date: 20111018
  Transmission Date: 20120403
  Serious: Yes (Hospitalization)
  Sender: FDA-Public Use
  Company Number: JP-CELGENEUS-087-21660-11102563

PATIENT
  Sex: Female
  Weight: 60 kg

DRUGS (5)
  1. ABRAXANE [Suspect]
     Indication: BREAST CANCER METASTATIC
     Dosage: 400 MILLIGRAM
     Route: 041
     Dates: start: 20101109, end: 20101221
  2. MAGNESIUM SULFATE [Concomitant]
     Dosage: 4 TABLET
     Route: 048
     Dates: start: 20101027, end: 20110105
  3. ETODOLAC [Concomitant]
     Dosage: 400 MILLIGRAM
     Route: 048
     Dates: start: 20100914, end: 20110105
  4. CYTOTEC [Concomitant]
     Dosage: 4 TABLET
     Route: 048
     Dates: start: 20100914, end: 20110105
  5. OXYCONTIN [Concomitant]
     Dosage: 30 MILLIGRAM
     Route: 048
     Dates: start: 20101027, end: 20110105

REACTIONS (3)
  - C-REACTIVE PROTEIN INCREASED [None]
  - PYREXIA [None]
  - ENTEROCOLITIS [None]
